FAERS Safety Report 5512217-3 (Version None)
Quarter: 2007Q4

REPORT INFORMATION
  Report Type: 
  Country: None (occurrence: None)
  Receive Date: 20071112
  Receipt Date: 20071029
  Transmission Date: 20080405
  Serious: Yes (Other)
  Sender: FDA-Public Use
  Company Number: PHBS2007DZ18112

PATIENT
  Age: 54 Year
  Sex: Female

DRUGS (5)
  1. VALSARTAN [Suspect]
     Indication: HYPERTENSION
     Dosage: 160 MG/DAY
     Route: 048
  2. NICARDIPINE HCL [Concomitant]
     Dosage: 50 MG, BID
  3. FUROSEMIDE [Concomitant]
     Dosage: 20 MG, UNK
  4. GLYBURIDE [Concomitant]
     Dosage: 50 MG, TID
  5. GLUCOPHAGE [Concomitant]

REACTIONS (2)
  - HAEMOGLOBIN DECREASED [None]
  - HAEMOLYTIC ANAEMIA [None]
